FAERS Safety Report 7536151-2 (Version None)
Quarter: 2011Q2

REPORT INFORMATION
  Report Type: 
  Country: None (occurrence: None)
  Receive Date: 20110609
  Receipt Date: 20110527
  Transmission Date: 20111010
  Serious: Yes (Hospitalization, Other)
  Sender: FDA-Public Use
  Company Number: US-ELI_LILLY_AND_COMPANY-US201106000321

PATIENT
  Age: 74 Year
  Sex: Female

DRUGS (1)
  1. EVISTA [Suspect]
     Dosage: 60 MG, UNK

REACTIONS (3)
  - INTESTINAL OBSTRUCTION [None]
  - NEOPLASM MALIGNANT [None]
  - HOSPITALISATION [None]
